FAERS Safety Report 18797658 (Version 1)
Quarter: 2021Q1

REPORT INFORMATION
  Report Type: Spontaneous
  Country: US (occurrence: US)
  Receive Date: 20210128
  Receipt Date: 20210128
  Transmission Date: 20210419
  Serious: Yes (Hospitalization, Other)
  Sender: FDA-Public Use
  Company Number: US-AUROBINDO-AUR-APL-2021-003184

PATIENT
  Age: 24 Year
  Sex: Female

DRUGS (1)
  1. DIVALPROEX SODIUM DR [Suspect]
     Active Substance: DIVALPROEX SODIUM
     Indication: SEIZURE
     Dosage: 100 DOSAGE FORM (100MG)
     Route: 065

REACTIONS (11)
  - Encephalopathy [Unknown]
  - Incoherent [Recovered/Resolved]
  - Agitation [Recovered/Resolved]
  - Overdose [Recovered/Resolved]
  - Hypocalcaemia [Recovered/Resolved]
  - Osmolar gap increased [Recovered/Resolved]
  - Toxicity to various agents [Unknown]
  - Osmolar gap [Recovered/Resolved]
  - Hypernatraemia [Recovered/Resolved]
  - Hyperammonaemia [Recovered/Resolved]
  - Metabolic acidosis [Recovered/Resolved]
